FAERS Safety Report 8324997-2 (Version None)
Quarter: 2012Q2

REPORT INFORMATION
  Report Type: 
  Country: None (occurrence: None)
  Receive Date: 20120501
  Receipt Date: 20100311
  Transmission Date: 20120825
  Serious: No
  Sender: FDA-Public Use
  Company Number: US-TEVA-2010001456

PATIENT
  Sex: Male
  Weight: 59.02 kg

DRUGS (1)
  1. NUVIGIL [Suspect]
     Indication: CEREBRAL PALSY
     Dosage: 150 MILLIGRAM;
     Route: 048
     Dates: start: 20100310

REACTIONS (3)
  - HYPERHIDROSIS [None]
  - ERUCTATION [None]
  - FEELING HOT [None]
